FAERS Safety Report 9446865 (Version 1)
Quarter: 2013Q3

REPORT INFORMATION
  Report Type: Spontaneous
  Country: US (occurrence: US)
  Receive Date: 20130807
  Receipt Date: 20130807
  Transmission Date: 20140515
  Serious: No
  Sender: FDA-Public Use
  Company Number: US-AMGEN-USASP2013051291

PATIENT
  Age: 57 Year
  Sex: Female

DRUGS (4)
  1. ENBREL [Suspect]
     Indication: RHEUMATOID ARTHRITIS
     Dosage: UNK MG, QWK
     Route: 065
     Dates: start: 20080728
  2. IMURAN /00001501/ [Suspect]
     Dosage: 100 MG, QD
     Dates: start: 201303
  3. ARAVA [Suspect]
     Dosage: UNK MG, QD  TOOK FOR 2-3 YEARS
  4. METHOTREXATE [Concomitant]
     Dosage: UNK MG, QWK ORAL AND INJ BOTH FOR ABOUT 3 MONTHS
     Route: 048

REACTIONS (2)
  - Rheumatoid arthritis [Not Recovered/Not Resolved]
  - Diarrhoea [Recovered/Resolved]
